FAERS Safety Report 12141962 (Version 1)
Quarter: 2016Q1

REPORT INFORMATION
  Report Type: Spontaneous
  Country: US (occurrence: US)
  Receive Date: 20160303
  Receipt Date: 20160303
  Transmission Date: 20160526
  Serious: No
  Sender: FDA-Public Use
  Company Number: US-ELI_LILLY_AND_COMPANY-US201602006535

PATIENT
  Sex: Male

DRUGS (2)
  1. TRULICITY [Suspect]
     Active Substance: DULAGLUTIDE
     Indication: TYPE 2 DIABETES MELLITUS
     Dosage: 0.75 MG, ONCE EVERY WEEK
     Route: 065
     Dates: start: 201601
  2. METFORMIN [Suspect]
     Active Substance: METFORMIN HYDROCHLORIDE
     Indication: PRODUCT USED FOR UNKNOWN INDICATION
     Dosage: UNK, UNKNOWN
     Route: 065
     Dates: start: 201601

REACTIONS (6)
  - Vomiting [Recovered/Resolved]
  - Eructation [Recovered/Resolved]
  - Pruritus [Recovered/Resolved]
  - Flatulence [Recovered/Resolved]
  - Incorrect product storage [Unknown]
  - Diarrhoea [Recovered/Resolved]
